FAERS Safety Report 5170288-0 (Version None)
Quarter: 2006Q4

REPORT INFORMATION
  Report Type: 
  Country: None (occurrence: None)
  Receive Date: 20061212
  Receipt Date: 20061201
  Transmission Date: 20070319
  Serious: Yes (Other)
  Sender: FDA-Public Use
  Company Number: US-JNJFOC-20061200907

PATIENT
  Sex: Female
  Weight: 79.38 kg

DRUGS (2)
  1. TOPAMAX [Suspect]
     Indication: MIGRAINE PROPHYLAXIS
  2. IMITREX [Concomitant]
     Indication: MIGRAINE

REACTIONS (3)
  - COUGH [None]
  - DYSPNOEA [None]
  - PALPITATIONS [None]
